FAERS Safety Report 24216546 (Version 1)
Quarter: 2024Q3

REPORT INFORMATION
  Report Type: Report from Study
  Country: US (occurrence: US)
  Receive Date: 20240816
  Receipt Date: 20240816
  Transmission Date: 20241016
  Serious: Yes (Other)
  Sender: UCB
  Company Number: US-UCBSA-2024024346

PATIENT
  Sex: Female

DRUGS (1)
  1. CERTOLIZUMAB PEGOL [Suspect]
     Active Substance: CERTOLIZUMAB PEGOL
     Indication: Rheumatoid arthritis
     Dosage: 400 MILLIGRAM, EV 4 WEEKS
     Dates: start: 20230501

REACTIONS (3)
  - Rheumatoid arthritis [Not Recovered/Not Resolved]
  - Asthma [Not Recovered/Not Resolved]
  - Urinary tract disorder [Not Recovered/Not Resolved]

NARRATIVE: CASE EVENT DATE: 20240101
